FAERS Safety Report 25059847 (Version 1)
Quarter: 2025Q1

REPORT INFORMATION
  Report Type: Spontaneous
  Country: US (occurrence: US)
  Receive Date: 20250310
  Receipt Date: 20250310
  Transmission Date: 20250409
  Serious: Yes (Other)
  Sender: SANOFI AVENTIS
  Company Number: US-DialogSolutions-SAAVPROD-PI744032-C3

PATIENT
  Age: 39 Year
  Sex: Male

DRUGS (25)
  1. THYMOGLOBULIN [Suspect]
     Active Substance: LAPINE T-LYMPHOCYTE IMMUNE GLOBULIN
     Indication: Erythema
     Dates: start: 201403
  2. THYMOGLOBULIN [Suspect]
     Active Substance: LAPINE T-LYMPHOCYTE IMMUNE GLOBULIN
     Indication: Swelling
     Dates: start: 201410
  3. HYDROCORTISONE [Suspect]
     Active Substance: HYDROCORTISONE
     Indication: Erythema
     Route: 061
     Dates: start: 201410
  4. HYDROCORTISONE [Suspect]
     Active Substance: HYDROCORTISONE
     Indication: Swelling
  5. DEXAMETHASONE [Suspect]
     Active Substance: DEXAMETHASONE
     Indication: Erythema
     Route: 048
     Dates: start: 201410
  6. DEXAMETHASONE [Suspect]
     Active Substance: DEXAMETHASONE
     Indication: Swelling
  7. MYCOPHENOLATE MOFETIL [Suspect]
     Active Substance: MYCOPHENOLATE MOFETIL
     Dates: start: 201403
  8. MYCOPHENOLATE MOFETIL [Suspect]
     Active Substance: MYCOPHENOLATE MOFETIL
     Dosage: 2000 MG, QD (MAINTAINANCE)
     Dates: start: 201403, end: 201409
  9. MYCOPHENOLATE MOFETIL [Suspect]
     Active Substance: MYCOPHENOLATE MOFETIL
     Dates: start: 201409, end: 201503
  10. MYCOPHENOLATE MOFETIL [Suspect]
     Active Substance: MYCOPHENOLATE MOFETIL
     Dates: start: 201503, end: 201803
  11. MYCOPHENOLATE MOFETIL [Suspect]
     Active Substance: MYCOPHENOLATE MOFETIL
     Dates: start: 201803, end: 201909
  12. MYCOPHENOLATE MOFETIL [Suspect]
     Active Substance: MYCOPHENOLATE MOFETIL
     Dates: start: 201909, end: 202308
  13. PREDNISONE [Suspect]
     Active Substance: PREDNISONE
     Dates: start: 201403, end: 201406
  14. PREDNISONE [Suspect]
     Active Substance: PREDNISONE
     Dates: start: 201406, end: 201703
  15. PREDNISONE [Suspect]
     Active Substance: PREDNISONE
     Dates: start: 201703, end: 201709
  16. PREDNISONE [Suspect]
     Active Substance: PREDNISONE
     Dates: start: 201709, end: 201809
  17. PREDNISONE [Suspect]
     Active Substance: PREDNISONE
     Dates: start: 201809, end: 202309
  18. METHYLPREDNISOLONE [Suspect]
     Active Substance: METHYLPREDNISOLONE
     Dates: start: 201403
  19. SIROLIMUS [Suspect]
     Active Substance: SIROLIMUS
     Dates: start: 201503
  20. TACROLIMUS [Suspect]
     Active Substance: TACROLIMUS
     Indication: Erythema
     Dates: start: 201403
  21. TACROLIMUS [Suspect]
     Active Substance: TACROLIMUS
     Indication: Swelling
     Route: 061
     Dates: start: 201410
  22. TACROLIMUS [Suspect]
     Active Substance: TACROLIMUS
     Dates: start: 201506
  23. BELATACEPT [Suspect]
     Active Substance: BELATACEPT
     Dosage: 5 MG/KG, QM
     Dates: start: 201506, end: 202309
  24. IMMUNE GLOBULIN NOS [Concomitant]
     Active Substance: IMMUNE GLOBULIN NOS
     Indication: Erythema
     Route: 042
  25. IMMUNE GLOBULIN NOS [Concomitant]
     Active Substance: IMMUNE GLOBULIN NOS
     Indication: Swelling

REACTIONS (5)
  - Bowen^s disease [Unknown]
  - Cytomegalovirus infection [Unknown]
  - Oral candidiasis [Unknown]
  - COVID-19 [Unknown]
  - Staphylococcal infection [Unknown]

NARRATIVE: CASE EVENT DATE: 20140901
